FAERS Safety Report 9033987 (Version 1)
Quarter: 2013Q1

REPORT INFORMATION
  Report Type: Spontaneous
  Country: US (occurrence: US)
  Receive Date: 20130128
  Receipt Date: 20130128
  Transmission Date: 20140127
  Serious: Yes (Other)
  Sender: FDA-Public Use
  Company Number: US-AMGEN-USASP2012066444

PATIENT
  Sex: Male
  Weight: 83.9 kg

DRUGS (3)
  1. ENBREL [Suspect]
     Indication: PRODUCT USED FOR UNKNOWN INDICATION
     Dosage: 50 MG, QWK
     Route: 058
  2. CRESTOR [Concomitant]
     Dosage: 10 MG, UNK
  3. LISINOPRIL [Concomitant]
     Dosage: 10 MG, UNK

REACTIONS (4)
  - Hip arthroplasty [Unknown]
  - Arthralgia [Unknown]
  - Joint swelling [Unknown]
  - Spinal pain [Unknown]
